FAERS Safety Report 7780563-9 (Version None)
Quarter: 2011Q3

REPORT INFORMATION
  Report Type: 
  Country: None (occurrence: None)
  Receive Date: 20110923
  Receipt Date: 20110910
  Transmission Date: 20111222
  Serious: Yes (Hospitalization)
  Sender: FDA-Public Use
  Company Number: 2011AP002035

PATIENT
  Age: 76 Year
  Sex: Female

DRUGS (4)
  1. GABAPENTIN [Suspect]
     Indication: DIABETIC NEUROPATHY
     Dosage: 1200 MG/Q8H
  2. GLYBURIDE [Concomitant]
  3. ZOLPIDEM [Concomitant]
  4. OXYCODONE HCL AND ACETAMINOPHEN [Concomitant]

REACTIONS (10)
  - PAIN IN EXTREMITY [None]
  - LETHARGY [None]
  - AGITATION [None]
  - TREATMENT NONCOMPLIANCE [None]
  - RESPIRATORY RATE INCREASED [None]
  - DRUG WITHDRAWAL SYNDROME [None]
  - AKATHISIA [None]
  - CONFUSIONAL STATE [None]
  - ANXIETY [None]
  - BLOOD GLUCOSE INCREASED [None]
